FAERS Safety Report 9959261 (Version 2)
Quarter: 2014Q3

REPORT INFORMATION
  Report Type: Spontaneous
  Country: DE (occurrence: None)
  Receive Date: 20140228
  Receipt Date: 20140929
  Transmission Date: 20150326
  Serious: Yes (Death, Hospitalization)
  Sender: FDA-Public Use
  Company Number: 2014DE003036

PATIENT
  Age: 63 Year
  Sex: Male

DRUGS (1)
  1. ICLUSIG [Suspect]
     Active Substance: PONATINIB
     Indication: GASTRIC CANCER
     Dosage: UNK, ORAL
     Route: 048
     Dates: start: 20140110

REACTIONS (3)
  - Cerebrovascular accident [None]
  - Off label use [None]
  - Disease progression [None]

NARRATIVE: CASE EVENT DATE: 20140110
